FAERS Safety Report 16913032 (Version 1)
Quarter: 2019Q4

REPORT INFORMATION
  Report Type: Report from Study
  Country: US (occurrence: US)
  Receive Date: 20191014
  Receipt Date: 20191014
  Transmission Date: 20200122
  Serious: Yes (Other)
  Sender: FDA-Public Use
  Company Number: US-ROCHE-2434469

PATIENT

DRUGS (2)
  1. PREDNISONE. [Suspect]
     Active Substance: PREDNISONE
     Indication: THROMBOTIC THROMBOCYTOPENIC PURPURA
     Route: 065
  2. RITUXIMAB. [Suspect]
     Active Substance: RITUXIMAB
     Indication: THROMBOTIC THROMBOCYTOPENIC PURPURA
     Dosage: FOR 4 WEEKS
     Route: 041

REACTIONS (7)
  - Cellulitis [Unknown]
  - Respiratory failure [Unknown]
  - Device related infection [Unknown]
  - Hypotension [Unknown]
  - Lower gastrointestinal haemorrhage [Unknown]
  - Atrial fibrillation [Unknown]
  - Chest pain [Unknown]
